FAERS Safety Report 7999409-9 (Version None)
Quarter: 2011Q4

REPORT INFORMATION
  Report Type: 
  Country: None (occurrence: None)
  Receive Date: 20111221
  Receipt Date: 20111208
  Transmission Date: 20120403
  Serious: Yes (Hospitalization)
  Sender: FDA-Public Use
  Company Number: NL-ELI_LILLY_AND_COMPANY-NL201111008204

PATIENT
  Sex: Female

DRUGS (1)
  1. HUMALOG [Suspect]

REACTIONS (4)
  - HYPOGLYCAEMIA [None]
  - BLOOD GLUCOSE ABNORMAL [None]
  - GASTRIC DISORDER [None]
  - HOSPITALISATION [None]
